FAERS Safety Report 6057663-7 (Version None)
Quarter: 2009Q1

REPORT INFORMATION
  Report Type: 
  Country: None (occurrence: None)
  Receive Date: 20090129
  Receipt Date: 20090123
  Transmission Date: 20090719
  Serious: Yes (Death, Other)
  Sender: FDA-Public Use
  Company Number: ES-AVENTIS-200821810GDDC

PATIENT
  Age: 76 Year
  Sex: Female

DRUGS (7)
  1. DOCETAXEL [Suspect]
     Route: 042
     Dates: start: 20081110, end: 20081201
  2. OXALIPLATIN [Suspect]
     Route: 042
     Dates: start: 20081110, end: 20081201
  3. CAPECITABINE [Suspect]
     Route: 048
     Dates: start: 20081110, end: 20081210
  4. ACOVIL [Concomitant]
  5. FERPLEX [Concomitant]
  6. DRUGS AFFECTING MINERALIZATION [Concomitant]
  7. COSOPT [Concomitant]

REACTIONS (3)
  - CREATININE RENAL CLEARANCE ABNORMAL [None]
  - DIARRHOEA [None]
  - SUDDEN DEATH [None]
